FAERS Safety Report 6922769-4 (Version None)
Quarter: 2010Q3

REPORT INFORMATION
  Report Type: 
  Country: None (occurrence: None)
  Receive Date: 20100813
  Receipt Date: 20100803
  Transmission Date: 20110219
  Serious: No
  Sender: FDA-Public Use
  Company Number: US-BAYER-201018753BCC

PATIENT
  Age: 21 Year
  Sex: Female
  Weight: 134 kg

DRUGS (2)
  1. ALEVE (CAPLET) [Suspect]
     Indication: SELF INJURIOUS BEHAVIOUR
     Dosage: TOTAL DAILY DOSE: 11 G  UNIT DOSE: 220 MG
     Route: 048
     Dates: start: 20100803
  2. BIRTH CONTROL PILLS [Concomitant]
     Route: 065

REACTIONS (1)
  - SOMNOLENCE [None]
